FAERS Safety Report 5207393-6 (Version None)
Quarter: 2007Q1

REPORT INFORMATION
  Report Type: 
  Country: None (occurrence: None)
  Receive Date: 20070112
  Receipt Date: 20070104
  Transmission Date: 20070707
  Serious: Yes (Hospitalization)
  Sender: FDA-Public Use
  Company Number: SE-SHR-SE-2007-000287

PATIENT
  Age: 26 Year
  Sex: Female

DRUGS (2)
  1. BETASERON [Suspect]
     Dosage: .5 ML, 1X/WEEK
     Dates: start: 20061201
  2. BETASERON [Suspect]
     Dosage: .75 ML, 1X/WEEK

REACTIONS (2)
  - ABDOMINAL PAIN [None]
  - DIARRHOEA HAEMORRHAGIC [None]
